FAERS Safety Report 16776166 (Version 1)
Quarter: 2019Q3

REPORT INFORMATION
  Report Type: Spontaneous
  Country: DK (occurrence: DK)
  Receive Date: 20190905
  Receipt Date: 20190905
  Transmission Date: 20191005
  Serious: Yes (Hospitalization)
  Sender: FDA-Public Use
  Company Number: DK-009507513-1908DNK010193

PATIENT
  Age: 22 Year
  Sex: Female

DRUGS (2)
  1. NEXPLANON [Suspect]
     Active Substance: ETONOGESTREL
     Indication: CONTRACEPTIVE IMPLANT
     Dosage: 1 DOSAGE FORM, STRENGTH: 68 MG
     Route: 050
     Dates: start: 20180822
  2. THYCAPZOL [Concomitant]
     Active Substance: METHIMAZOLE
     Indication: BASEDOW^S DISEASE
     Dosage: DOSE: VARYING DOSES. STRENGTH: 5 MG
     Route: 048
     Dates: start: 20180801, end: 20190114

REACTIONS (1)
  - Pregnancy with implant contraceptive [Recovered/Resolved with Sequelae]
